FAERS Safety Report 6133874-7 (Version None)
Quarter: 2009Q1

REPORT INFORMATION
  Report Type: 
  Country: None (occurrence: None)
  Receive Date: 20090326
  Receipt Date: 20090325
  Transmission Date: 20090719
  Serious: Yes (Death, Other)
  Sender: FDA-Public Use
  Company Number: PHHY2009JP11067

PATIENT
  Age: 61 Year
  Sex: Female

DRUGS (4)
  1. CYCLOSPORINE [Suspect]
     Indication: CORD BLOOD TRANSPLANT THERAPY
  2. MYCOPHENOLATE MOFETIL [Concomitant]
     Indication: CORD BLOOD TRANSPLANT THERAPY
  3. FLUDARABINE PHOSPHATE [Concomitant]
     Indication: CORD BLOOD TRANSPLANT THERAPY
     Dosage: 30MG/M^2
  4. CYCLOPHOSPHAMIDE [Concomitant]
     Indication: CORD BLOOD TRANSPLANT THERAPY
     Dosage: 25 MG/KG

REACTIONS (8)
  - ACUTE MYELOID LEUKAEMIA [None]
  - COMPLICATIONS OF BONE MARROW TRANSPLANT [None]
  - CYTOMEGALOVIRUS GASTRITIS [None]
  - CYTOMEGALOVIRUS INFECTION [None]
  - EYELID OEDEMA [None]
  - LEUKAEMIC INFILTRATION PULMONARY [None]
  - LYMPHOCYTE MORPHOLOGY ABNORMAL [None]
  - PYREXIA [None]
